FAERS Safety Report 24841667 (Version 1)
Quarter: 2025Q1

REPORT INFORMATION
  Report Type: Spontaneous
  Country: US (occurrence: US)
  Receive Date: 20250114
  Receipt Date: 20250114
  Transmission Date: 20250409
  Serious: No
  Sender: SK LIFE SCIENCE
  Company Number: US-SK LIFE SCIENCE, INC-SKPVG-2020-000148

PATIENT

DRUGS (8)
  1. XCOPRI [Suspect]
     Active Substance: CENOBAMATE
     Indication: Seizure
     Route: 048
     Dates: start: 2020
  2. XCOPRI [Suspect]
     Active Substance: CENOBAMATE
     Indication: Seizure
     Dosage: 50 MILLIGRAM, QD (ON SIXTH WEEK ON SATURDAY)
     Route: 048
     Dates: start: 2020
  3. XCOPRI [Suspect]
     Active Substance: CENOBAMATE
     Route: 048
  4. XCOPRI [Suspect]
     Active Substance: CENOBAMATE
     Route: 048
  5. TOPAMAX [Suspect]
     Active Substance: TOPIRAMATE
     Indication: Product used for unknown indication
     Dosage: 250 MILLIGRAM, BID (IN AM AND PM)
     Route: 065
     Dates: start: 2018
  6. TOPAMAX [Suspect]
     Active Substance: TOPIRAMATE
     Dosage: 4 TAB, BID; TABLETS IN THE MORNING AND FOUR AT NIGHT
     Route: 065
  7. TOPAMAX [Suspect]
     Active Substance: TOPIRAMATE
     Route: 065
  8. ALLOPURINOL [Concomitant]
     Active Substance: ALLOPURINOL
     Indication: Product used for unknown indication
     Dosage: 100 MILLIGRAM, QD
     Route: 065

REACTIONS (4)
  - Seizure [Recovered/Resolved]
  - Adverse drug reaction [Unknown]
  - Muscle twitching [Recovered/Resolved]
  - Tremor [Recovered/Resolved]

NARRATIVE: CASE EVENT DATE: 20200701
